FAERS Safety Report 15684866 (Version 1)
Quarter: 2018Q4

REPORT INFORMATION
  Report Type: Spontaneous
  Country: US (occurrence: US)
  Receive Date: 20181204
  Receipt Date: 20181204
  Transmission Date: 20190205
  Serious: No
  Sender: FDA-Public Use
  Company Number: US-ANTARES PHARMA, INC.-2018-LIT-ME-0494

PATIENT
  Age: 16 Year
  Sex: Female

DRUGS (3)
  1. METHOTREXATE. [Suspect]
     Active Substance: METHOTREXATE
     Indication: OFF LABEL USE
  2. FOLIC ACID. [Concomitant]
     Active Substance: FOLIC ACID
  3. METHOTREXATE. [Suspect]
     Active Substance: METHOTREXATE
     Indication: LICHEN SCLEROSUS
     Dosage: 10 MG (0.16 MG/KG), QWK
     Route: 048

REACTIONS (5)
  - Depression [Recovered/Resolved]
  - Depressed mood [Recovered/Resolved]
  - Off label use [Recovered/Resolved]
  - Aggression [Recovered/Resolved]
  - Mood altered [Recovered/Resolved]
